FAERS Safety Report 5556920-8 (Version None)
Quarter: 2007Q4

REPORT INFORMATION
  Report Type: 
  Country: None (occurrence: None)
  Receive Date: 20071211
  Receipt Date: 20071211
  Transmission Date: 20080405
  Serious: No
  Sender: FDA-Public Use
  Company Number: None

PATIENT

DRUGS (1)
  1. BETAMETHASONE (COMPOUNDED) [Suspect]
     Dosage: 3

REACTIONS (4)
  - ANXIETY [None]
  - BACK PAIN [None]
  - INSOMNIA [None]
  - MUSCULOSKELETAL PAIN [None]
